FAERS Safety Report 18669666 (Version 1)
Quarter: 2020Q4

REPORT INFORMATION
  Report Type: Spontaneous
  Country: PL (occurrence: PL)
  Receive Date: 20201228
  Receipt Date: 20201228
  Transmission Date: 20210114
  Serious: Yes (Hospitalization, Other)
  Sender: FDA-Public Use
  Company Number: PL-ALKEM LABORATORIES LIMITED-PL-ALKEM-2020-03539

PATIENT
  Age: 42 Year
  Sex: Female
  Weight: 63 kg

DRUGS (6)
  1. TACROLIMUS. [Suspect]
     Active Substance: TACROLIMUS
     Indication: IMMUNOSUPPRESSION
     Dosage: 7 MILLIGRAM, QD
     Route: 065
     Dates: start: 201810, end: 2019
  2. ENCORTON [Suspect]
     Active Substance: PREDNISONE
     Indication: IMMUNOSUPPRESSION
     Dosage: 5 MILLIGRAM, QD
     Route: 065
  3. CERTICAN [Suspect]
     Active Substance: EVEROLIMUS
     Indication: IMMUNOSUPPRESSION
     Dosage: UNK UNK, QD
     Route: 065
     Dates: start: 201901, end: 2019
  4. TACROLIMUS. [Suspect]
     Active Substance: TACROLIMUS
     Dosage: 2 MILLIGRAM, QD
     Route: 065
     Dates: start: 201908
  5. MYCOPHENOLATE MOFETIL. [Suspect]
     Active Substance: MYCOPHENOLATE MOFETIL
     Indication: IMMUNOSUPPRESSION
     Dosage: UNK UNK, QD
     Route: 065
     Dates: start: 201712, end: 201810
  6. TACROLIMUS. [Suspect]
     Active Substance: TACROLIMUS
     Dosage: UNK UNK, QD
     Route: 065
     Dates: start: 201712, end: 201810

REACTIONS (13)
  - Cytomegalovirus infection [Recovering/Resolving]
  - Pneumonia [Recovering/Resolving]
  - Epstein-Barr virus infection [Recovering/Resolving]
  - Herpes zoster [Recovering/Resolving]
  - Aplasia pure red cell [Recovering/Resolving]
  - Escherichia infection [Recovering/Resolving]
  - Tinea infection [Recovering/Resolving]
  - Arthralgia [Recovered/Resolved]
  - Normocytic anaemia [Recovering/Resolving]
  - Postoperative wound infection [Unknown]
  - Urinary tract infection [Recovering/Resolving]
  - Parvovirus B19 infection [Not Recovered/Not Resolved]
  - Candida infection [Recovering/Resolving]

NARRATIVE: CASE EVENT DATE: 201808
